FAERS Safety Report 5273902-4 (Version None)
Quarter: 2007Q1

REPORT INFORMATION
  Report Type: 
  Country: None (occurrence: None)
  Receive Date: 20070323
  Receipt Date: 20070314
  Transmission Date: 20070707
  Serious: Yes (Other)
  Sender: FDA-Public Use
  Company Number: PHEH2007US03107

PATIENT
  Age: 54 Year
  Sex: Female
  Weight: 75.283 kg

DRUGS (9)
  1. ZOMETA [Suspect]
     Indication: MULTIPLE MYELOMA
  2. BACTRIM DS [Concomitant]
  3. DECADRON                                /CAN/ [Concomitant]
     Dosage: 10MG 4 DAYS ON 4 DAYS OFF
  4. THALIDOMIDE [Concomitant]
     Dosage: 150MG QD
  5. NEXIUM [Concomitant]
     Dosage: UNK QD
  6. GINKGO [Concomitant]
  7. GLUCOSAMINE [Concomitant]
  8. CHONDROITIN SULFATE [Concomitant]
  9. MOBIC [Concomitant]
     Dosage: QD

REACTIONS (3)
  - GINGIVAL DISCOLOURATION [None]
  - PRIMARY SEQUESTRUM [None]
  - TOOTH EXTRACTION [None]
